FAERS Safety Report 7236128-0 (Version None)
Quarter: 2011Q1

REPORT INFORMATION
  Report Type: 
  Country: None (occurrence: None)
  Receive Date: 20110111
  Receipt Date: 20101227
  Transmission Date: 20110831
  Serious: Yes (Other)
  Sender: FDA-Public Use
  Company Number: AUR-APL-2011-00078

PATIENT
  Age: 54 Year
  Sex: Male
  Weight: 94.33 kg

DRUGS (4)
  1. HYDROCHLOROTHIAZIDE [Suspect]
     Indication: DIURETIC THERAPY
     Dosage: 12.5MG - QD - ORAL
     Route: 048
     Dates: start: 20101201, end: 20101201
  2. HYDROCHLOROTHIAZIDE [Suspect]
     Indication: HEADACHE
     Dosage: 12.5MG - QD - ORAL
     Route: 048
     Dates: start: 20101201, end: 20101201
  3. LYRICA [Suspect]
     Indication: HEADACHE
     Dosage: 150MG - BID - ORAL
     Route: 048
     Dates: start: 20101201, end: 20101201
  4. LYRICA [Suspect]
     Indication: DIURETIC THERAPY
     Dosage: 150MG - BID - ORAL
     Route: 048
     Dates: start: 20101201, end: 20101201

REACTIONS (4)
  - DRUG INEFFECTIVE [None]
  - HEADACHE [None]
  - NEURALGIA [None]
  - BLOOD GLUCOSE INCREASED [None]
